FAERS Safety Report 9286240 (Version 1)
Quarter: 2013Q2

REPORT INFORMATION
  Report Type: Spontaneous
  Country: US (occurrence: None)
  Receive Date: 20130510
  Receipt Date: 20130510
  Transmission Date: 20140414
  Serious: Yes (Hospitalization)
  Sender: FDA-Public Use
  Company Number: None

PATIENT
  Age: 51 Year
  Sex: Female
  Weight: 67.8 kg

DRUGS (7)
  1. DIPRIVAN [Suspect]
     Indication: COLONOSCOPY
     Route: 042
  2. DIPRIVAN [Suspect]
     Indication: OESOPHAGOGASTRODUODENOSCOPY
     Route: 042
  3. PROPOFOL [Suspect]
  4. LR [Concomitant]
  5. ROBNUL [Concomitant]
  6. LIDOCAINE [Concomitant]
  7. FAMOTODINE INJ [Concomitant]

REACTIONS (6)
  - Product contamination [None]
  - Pyrexia [None]
  - Chills [None]
  - Neutrophil count increased [None]
  - Monocyte count decreased [None]
  - Inflammation [None]
